FAERS Safety Report 6685161-6 (Version None)
Quarter: 2010Q2

REPORT INFORMATION
  Report Type: 
  Country: None (occurrence: None)
  Receive Date: 20100416
  Receipt Date: 20100408
  Transmission Date: 20101027
  Serious: Yes (Other)
  Sender: FDA-Public Use
  Company Number: HQWYE936916AUG05

PATIENT
  Sex: Female
  Weight: 83.08 kg

DRUGS (3)
  1. PREMPRO [Suspect]
     Indication: HORMONE REPLACEMENT THERAPY
  2. LOESTRIN 1.5/30 [Suspect]
  3. EFFEXOR XR [Suspect]

REACTIONS (2)
  - BREAST CANCER [None]
  - HYPERTENSION [None]
